FAERS Safety Report 8996176 (Version 1)
Quarter: 2013Q1

REPORT INFORMATION
  Report Type: Spontaneous
  Country: US (occurrence: US)
  Receive Date: 20130103
  Receipt Date: 20130103
  Transmission Date: 20140127
  Serious: Yes (Hospitalization, Other)
  Sender: FDA-Public Use
  Company Number: PHEH2012US023449

PATIENT
  Age: 66 Year
  Sex: Male

DRUGS (6)
  1. CLOZARIL [Suspect]
     Indication: SCHIZOAFFECTIVE DISORDER
     Dosage: 12.5 MG
     Route: 048
  2. GABAPENTIN [Concomitant]
     Indication: SCHIZOAFFECTIVE DISORDER
     Dosage: 300 MG
     Route: 048
  3. BUPROPION [Concomitant]
     Indication: SCHIZOAFFECTIVE DISORDER
     Dosage: 150 MG
     Route: 048
  4. LEVOTHYROXINE [Concomitant]
     Indication: BLOOD THYROID STIMULATING HORMONE DECREASED
     Dosage: 50 UG
     Route: 048
  5. ARIPIPRAZOLE [Concomitant]
     Indication: SCHIZOAFFECTIVE DISORDER
     Dosage: 15 MG
     Route: 048
  6. DIVALPROEX [Concomitant]
     Indication: SCHIZOAFFECTIVE DISORDER
     Dosage: 1000 MG, UNK
     Route: 048

REACTIONS (7)
  - Chronic obstructive pulmonary disease [Recovering/Resolving]
  - Pneumonia [Recovering/Resolving]
  - Cough [Recovering/Resolving]
  - Malaise [Recovering/Resolving]
  - Pyrexia [Recovering/Resolving]
  - Leukocytosis [Recovering/Resolving]
  - Neutrophil count increased [Unknown]
